FAERS Safety Report 9133342 (Version 1)
Quarter: 2013Q1

REPORT INFORMATION
  Report Type: Spontaneous
  Country: CH (occurrence: CH)
  Receive Date: 20130125
  Receipt Date: 20130125
  Transmission Date: 20140127
  Serious: Yes (Hospitalization)
  Sender: FDA-Public Use
  Company Number: PHHY2012CH125654

PATIENT
  Age: 50 Year
  Sex: Male

DRUGS (1)
  1. AFINITOR [Suspect]
     Indication: PANCREATIC CARCINOMA
     Dosage: 10 MG, QD
     Route: 048
     Dates: start: 201204, end: 20121020

REACTIONS (5)
  - Ventricular fibrillation [Unknown]
  - Ventricular tachycardia [Unknown]
  - Loss of consciousness [Unknown]
  - Agitation [Unknown]
  - Electrocardiogram ST segment elevation [Unknown]
